FAERS Safety Report 21016901 (Version 2)
Quarter: 2022Q3

REPORT INFORMATION
  Report Type: Spontaneous
  Country: US (occurrence: US)
  Receive Date: 20220628
  Receipt Date: 20220831
  Transmission Date: 20221027
  Serious: Yes (Hospitalization, Other)
  Sender: FDA-Public Use
  Company Number: US-REGENERON PHARMACEUTICALS, INC.-2022-083113

PATIENT
  Sex: Male

DRUGS (37)
  1. PRALUENT [Suspect]
     Active Substance: ALIROCUMAB
     Indication: Cardiac disorder
     Dosage: 150 MG, Q2W
     Route: 058
     Dates: start: 2021, end: 202204
  2. PRALUENT [Suspect]
     Active Substance: ALIROCUMAB
     Indication: Type IIa hyperlipidaemia
     Dosage: 150 MG, Q2W
     Route: 058
     Dates: start: 20220620
  3. PRALUENT [Suspect]
     Active Substance: ALIROCUMAB
     Indication: Chest pain
  4. FUROSEMIDE [Concomitant]
     Active Substance: FUROSEMIDE
     Indication: Cardiac failure congestive
     Dosage: 20 MG, QD
     Route: 048
  5. FUROSEMIDE [Concomitant]
     Active Substance: FUROSEMIDE
     Indication: Chest pain
  6. ASPIRIN [Concomitant]
     Active Substance: ASPIRIN
     Indication: Angina pectoris
     Dosage: 81 MG, QD
     Route: 048
  7. VALIUM [Concomitant]
     Active Substance: DIAZEPAM
     Indication: Anxiety
     Dosage: 5 MG, TWICE A DAY, AS NEEDED
     Route: 048
  8. VALIUM [Concomitant]
     Active Substance: DIAZEPAM
     Dosage: 5 MG, TWICE A DAY, AS NEEDED
     Route: 048
  9. ATORVASTATIN CALCIUM [Concomitant]
     Active Substance: ATORVASTATIN CALCIUM
     Indication: Aortic arteriosclerosis
     Dosage: 40 MG, QD AT BEDTIME
     Route: 048
  10. ALBUTEROL SULFATE [Concomitant]
     Active Substance: ALBUTEROL SULFATE
     Indication: Chronic obstructive pulmonary disease
     Dosage: 108 (90 BASE) MCG/ACT, INHALE 2 PUFFS EVERY 4 HOURS AS NEEDED
     Route: 048
  11. VENTOLIN HFA [Concomitant]
     Active Substance: ALBUTEROL SULFATE
     Indication: Chronic obstructive pulmonary disease
     Dosage: 108 (90 BASE) MCG/ACT, INHALE 2 PUFFS EVERY 4 HOURS AS NEEDED
     Route: 048
  12. DILTIAZEM [Concomitant]
     Active Substance: DILTIAZEM
     Dosage: 180 MG, QD
     Route: 048
  13. ELOCON [Concomitant]
     Active Substance: MOMETASONE FUROATE
     Indication: Product used for unknown indication
     Dosage: 0.1%, ONCE A DAY, EXTERNALLY
     Route: 065
  14. BETAMETHASONE\CLOTRIMAZOLE [Concomitant]
     Active Substance: BETAMETHASONE\CLOTRIMAZOLE
     Indication: Product used for unknown indication
     Dosage: 1-0.05%, 1 APPLICATION EXTERNALLY TWICE A DAY
     Route: 065
  15. TRIAMCINOLONE ACETONIDE [Concomitant]
     Active Substance: TRIAMCINOLONE ACETONIDE
     Indication: Product used for unknown indication
     Dosage: 0.5%, 1 APPLICATION EXTERNALLY TWICE A DAYS
  16. ADVIL [Concomitant]
     Active Substance: IBUPROFEN
     Indication: Product used for unknown indication
     Dosage: 2 200 MG TABLETS, PRN
     Route: 048
  17. ISOSORBIDE MONONITRATE [Concomitant]
     Active Substance: ISOSORBIDE MONONITRATE
     Indication: Angina pectoris
     Dosage: 2 30 MG TABLETS IN THE MORNING
     Route: 048
  18. ISOSORBIDE MONONITRATE [Concomitant]
     Active Substance: ISOSORBIDE MONONITRATE
     Indication: Chest pain
     Dosage: TAKE 3 30 MG TABLETS EVERYDAY, ONCE A DAY
  19. TRELEGY ELLIPTA [Concomitant]
     Active Substance: FLUTICASONE FUROATE\UMECLIDINIUM BROMIDE\VILANTEROL TRIFENATATE
     Indication: Product used for unknown indication
     Dosage: 100-62.5-25 MCG/INH 1 PUFF INHALATION ONCE A DAY
  20. MOMETASONE FUROATE [Concomitant]
     Active Substance: MOMETASONE FUROATE
     Indication: Arthritis
     Dosage: 0.1 CREAM, 1 APPLICATION, EXTERNALLY, ONCE A DAY
     Route: 065
  21. MOMETASONE FUROATE [Concomitant]
     Active Substance: MOMETASONE FUROATE
     Indication: Psoriasis
  22. METOPROLOL TARTRATE [Concomitant]
     Active Substance: METOPROLOL TARTRATE
     Indication: Product used for unknown indication
     Dosage: 25 MG, BID
     Route: 048
  23. ALBUTEROL\IPRATROPIUM [Concomitant]
     Active Substance: ALBUTEROL\IPRATROPIUM
     Indication: Product used for unknown indication
     Dosage: 0.5-2.5 (3) MG/ 3 ML SOLUTION 3 ML AS NEEDED EVRY 6 HOURS
  24. DILTIAZEM HYDROCHLORIDE [Concomitant]
     Active Substance: DILTIAZEM HYDROCHLORIDE
     Indication: Product used for unknown indication
     Dosage: 120 MG, QD
     Route: 048
  25. NITROGLYCERIN [Concomitant]
     Active Substance: NITROGLYCERIN
     Indication: Product used for unknown indication
     Dosage: 0.3 MG AS DIRECTED EVERY 10 MINUTES AS PRN
     Route: 060
  26. NITROGLYCERIN [Concomitant]
     Active Substance: NITROGLYCERIN
     Indication: Chest pain
     Dosage: PLACE ONE TABLET UNDER THE TONGUE EVERY 5 MINUTES, AS NEEDED
  27. TAMSULOSIN HYDROCHLORIDE [Concomitant]
     Active Substance: TAMSULOSIN HYDROCHLORIDE
     Indication: Product used for unknown indication
     Dosage: 0.4 MG, QD
     Route: 048
  28. KETOCONAZOLE [Concomitant]
     Active Substance: KETOCONAZOLE
     Indication: Psoriatic arthropathy
     Dosage: 2 %, 15 ML, EXTERNALLY, BID
     Dates: start: 20211210
  29. AMOXICILLIN\CLAVULANATE POTASSIUM [Concomitant]
     Active Substance: AMOXICILLIN\CLAVULANATE POTASSIUM
     Indication: Diverticulitis
     Dosage: 875-125 MG, 1 TABLET EVRY 12 HOURS
     Route: 048
     Dates: start: 20220311
  30. DICYCLOMINE HYDROCHLORIDE [Concomitant]
     Active Substance: DICYCLOMINE HYDROCHLORIDE
     Indication: Diverticulitis
     Dosage: 20 MG, TID
     Route: 048
     Dates: start: 20220311
  31. BETAMETHASONE DIPROPIONATE [Concomitant]
     Active Substance: BETAMETHASONE DIPROPIONATE
     Indication: Psoriatic arthropathy
     Dosage: 0.05%, 1 APPLICATION, EXTERANLLY, TID
     Route: 065
     Dates: start: 20220311
  32. PREDNISONE [Concomitant]
     Active Substance: PREDNISONE
     Indication: Product used for unknown indication
     Dosage: 20 MG, QD
     Route: 048
  33. CYCLOSPORINE [Concomitant]
     Active Substance: CYCLOSPORINE
     Indication: Psoriasis
     Dosage: 100 MG, BID
     Route: 048
  34. CYCLOSPORINE [Concomitant]
     Active Substance: CYCLOSPORINE
     Dosage: 100 MG, QD
     Route: 048
  35. CYCLOSPORINE [Concomitant]
     Active Substance: CYCLOSPORINE
     Dosage: 100 MG, BID
     Route: 048
  36. DEBROX [CELECOXIB] [Concomitant]
     Indication: Excessive cerumen production
     Dosage: 5 DROPS INTO AFFECTED EAR, TID
     Route: 065
     Dates: start: 20220429
  37. CORTISPORIN-TC [Concomitant]
     Active Substance: COLISTIN SULFATE\HYDROCORTISONE ACETATE\NEOMYCIN SULFATE\THONZONIUM BROMIDE
     Indication: Dermatitis
     Dosage: 3.3-3-10-0.5 MG/ML, 5 DROPS INTO AFFECTED EAR, TID
     Route: 065
     Dates: start: 20220429

REACTIONS (6)
  - Psoriatic arthropathy [Unknown]
  - Pustular psoriasis [Not Recovered/Not Resolved]
  - Diverticulitis [Unknown]
  - Chest pain [Unknown]
  - Psoriasis [Unknown]
  - Dermatitis [Unknown]

NARRATIVE: CASE EVENT DATE: 20210101
